FAERS Safety Report 17101411 (Version 2)
Quarter: 2020Q2

REPORT INFORMATION
  Report Type: Spontaneous
  Country: PT (occurrence: PT)
  Receive Date: 20191202
  Receipt Date: 20200406
  Transmission Date: 20200713
  Serious: Yes (Other)
  Sender: FDA-Public Use
  Company Number: PT-SA-2019SA327529

PATIENT
  Age: 80 Year
  Sex: Female

DRUGS (6)
  1. SPIRONOLACTONE. [Concomitant]
     Active Substance: SPIRONOLACTONE
     Dosage: UNK
  2. FUROSEMIDE. [Concomitant]
     Active Substance: FUROSEMIDE
     Dosage: UNK
  3. ENOXAPARIN SODIUM. [Suspect]
     Active Substance: ENOXAPARIN SODIUM
     Indication: PULMONARY EMBOLISM
     Dosage: 1 MG/KG, Q12H
     Route: 023
  4. PROPRANOLOL [Concomitant]
     Active Substance: PROPRANOLOL HYDROCHLORIDE
     Dosage: UNK
  5. BETAHISTINE [Concomitant]
     Active Substance: BETAHISTINE
     Dosage: UNK
  6. OLMESARTAN [Concomitant]
     Active Substance: OLMESARTAN
     Dosage: UNK

REACTIONS (9)
  - Shock haemorrhagic [Recovered/Resolved]
  - Cystitis [Unknown]
  - Haematuria [Unknown]
  - Blood volume expansion [Recovered/Resolved]
  - Pelvic haematoma [Recovered/Resolved]
  - Medication error [Unknown]
  - Cholestasis [Unknown]
  - Abdominal wall haematoma [Recovered/Resolved]
  - Arterial haemorrhage [Recovered/Resolved]
